FAERS Safety Report 15632004 (Version 4)
Quarter: 2019Q2

REPORT INFORMATION
  Report Type: Spontaneous
  Country: US (occurrence: US)
  Receive Date: 20181119
  Receipt Date: 20190604
  Transmission Date: 20190711
  Serious: Yes (Hospitalization)
  Sender: FDA-Public Use
  Company Number: US-PFIZER INC-2018470140

PATIENT
  Age: 63 Year
  Sex: Female
  Weight: 77 kg

DRUGS (6)
  1. IBRANCE [Suspect]
     Active Substance: PALBOCICLIB
     Indication: BREAST CANCER METASTATIC
     Dosage: 125 MG, CYCLIC (DAYS 1-21 Q28 DAYS)
     Route: 048
     Dates: start: 20181029
  2. PERCOCET [Concomitant]
     Active Substance: ACETAMINOPHEN\OXYCODONE HYDROCHLORIDE
  3. PRIMIDONE. [Concomitant]
     Active Substance: PRIMIDONE
  4. IBRANCE [Suspect]
     Active Substance: PALBOCICLIB
     Dosage: 125 MG, CYCLIC (DAYS 1-21 Q28 DAYS)
     Dates: start: 20181105
  5. MORPHINE [Concomitant]
     Active Substance: MORPHINE
  6. XGEVA [Concomitant]
     Active Substance: DENOSUMAB
     Dosage: UNK

REACTIONS (14)
  - Weight decreased [Unknown]
  - Sedation [Unknown]
  - Stomatitis [Unknown]
  - Nausea [Not Recovered/Not Resolved]
  - Decreased appetite [Unknown]
  - Incoherent [Unknown]
  - Vomiting [Unknown]
  - Blood test abnormal [Unknown]
  - Constipation [Unknown]
  - Swelling face [Unknown]
  - Pneumonia [Not Recovered/Not Resolved]
  - Retching [Unknown]
  - Pain in jaw [Unknown]
  - Urinary tract infection [Not Recovered/Not Resolved]

NARRATIVE: CASE EVENT DATE: 201810
